FAERS Safety Report 5052409-3 (Version None)
Quarter: 2006Q3

REPORT INFORMATION
  Report Type: 
  Country: None (occurrence: None)
  Receive Date: 20060717
  Receipt Date: 20060710
  Transmission Date: 20061208
  Serious: Yes (Other)
  Sender: FDA-Public Use
  Company Number: PHBS2006JP10425

PATIENT
  Sex: Male

DRUGS (8)
  1. VEGETAMIN A [Concomitant]
     Route: 048
  2. RISPERDAL [Concomitant]
     Route: 048
  3. LEXOTAN [Concomitant]
     Route: 048
  4. CONTOMIN [Concomitant]
     Route: 048
  5. HIRNAMIN [Concomitant]
     Route: 048
  6. ARTANE [Concomitant]
     Route: 048
  7. ADALAT [Concomitant]
     Route: 048
  8. TEGRETOL [Suspect]
     Dosage: 1200 MG/DAY
     Route: 048

REACTIONS (3)
  - DIPLOPIA [None]
  - FALL [None]
  - VISUAL ACUITY REDUCED [None]
